FAERS Safety Report 4819715-6 (Version None)
Quarter: 2005Q4

REPORT INFORMATION
  Report Type: 
  Country: None (occurrence: None)
  Receive Date: 20051102
  Receipt Date: 20051102
  Transmission Date: 20060501
  Serious: Yes (Other)
  Sender: FDA-Public Use
  Company Number: None

PATIENT
  Age: 59 Year
  Sex: Female
  Weight: 81.4 kg

DRUGS (1)
  1. HYDROCORTISONE/UREA [Suspect]

REACTIONS (1)
  - RASH [None]
